FAERS Safety Report 15228775 (Version 1)
Quarter: 2018Q3

REPORT INFORMATION
  Report Type: Spontaneous
  Country: GB (occurrence: PT)
  Receive Date: 20180801
  Receipt Date: 20180801
  Transmission Date: 20181010
  Serious: Yes (Hospitalization)
  Sender: FDA-Public Use
  Company Number: PT-FRESENIUS KABI-FK201808291

PATIENT
  Age: 63 Year
  Sex: Male

DRUGS (5)
  1. GEMCITABINE [Suspect]
     Active Substance: GEMCITABINE\GEMCITABINE HYDROCHLORIDE
     Indication: HODGKIN^S DISEASE
     Dosage: SECOND CYCLE
     Route: 065
     Dates: start: 2018
  2. VINORELBINE TARTRATE. [Suspect]
     Active Substance: VINORELBINE TARTRATE
     Indication: HODGKIN^S DISEASE
     Dosage: SECOND CYCLE
     Route: 065
     Dates: start: 2018
  3. VINORELBINE TARTRATE. [Suspect]
     Active Substance: VINORELBINE TARTRATE
     Dosage: FIRST CYCLE
     Route: 065
     Dates: start: 2018, end: 2018
  4. KEYTRUDA [Suspect]
     Active Substance: PEMBROLIZUMAB
     Indication: HODGKIN^S DISEASE
     Dosage: 200 MG, EVERY 3 WEEKS
     Route: 042
     Dates: start: 2018, end: 2018
  5. GEMCITABINE [Suspect]
     Active Substance: GEMCITABINE\GEMCITABINE HYDROCHLORIDE
     Dosage: FIRST CYCLE
     Route: 065
     Dates: start: 2018, end: 2018

REACTIONS (7)
  - Haematotoxicity [Recovered/Resolved]
  - Computerised tomogram abnormal [Unknown]
  - Pneumonitis [Unknown]
  - X-ray abnormal [Unknown]
  - Pyrexia [Recovered/Resolved]
  - Dyspnoea [Recovered/Resolved]
  - Infection [Recovered/Resolved]

NARRATIVE: CASE EVENT DATE: 2018
